FAERS Safety Report 22359600 (Version 4)
Quarter: 2023Q4

REPORT INFORMATION
  Report Type: Spontaneous
  Country: CO (occurrence: CO)
  Receive Date: 20230524
  Receipt Date: 20231003
  Transmission Date: 20240110
  Serious: Yes (Hospitalization, Other)
  Sender: FDA-Public Use
  Company Number: CO-009507513-2304COL008042

PATIENT
  Age: 42 Year
  Sex: Female

DRUGS (1)
  1. KEYTRUDA [Suspect]
     Active Substance: PEMBROLIZUMAB
     Indication: Malignant melanoma in situ
     Dosage: 200 MG, EVERY 21 DAYS (Q3W)
     Route: 042
     Dates: start: 20220107, end: 202301

REACTIONS (10)
  - Radiation skin injury [Recovering/Resolving]
  - Malignant neoplasm progression [Not Recovered/Not Resolved]
  - Toxic skin eruption [Recovered/Resolved]
  - Radiation injury [Recovering/Resolving]
  - Fatigue [Unknown]
  - Muscle fatigue [Unknown]
  - Mass [Not Recovered/Not Resolved]
  - Amenorrhoea [Not Recovered/Not Resolved]
  - Pain [Unknown]
  - Arthralgia [Unknown]

NARRATIVE: CASE EVENT DATE: 20230101
